FAERS Safety Report 6821480-8 (Version None)
Quarter: 2010Q3

REPORT INFORMATION
  Report Type: 
  Country: None (occurrence: None)
  Receive Date: 20100707
  Receipt Date: 20090620
  Transmission Date: 20110219
  Serious: No
  Sender: FDA-Public Use
  Company Number: US-PFIZER INC-2008098212

PATIENT
  Sex: Male

DRUGS (3)
  1. ZOLOFT [Suspect]
     Indication: DEPRESSION
     Dosage: 50MG/DAY
  2. ZOLOFT [Suspect]
     Indication: ANXIETY
  3. SERTRALINE HCL [Suspect]

REACTIONS (1)
  - DRUG INEFFECTIVE [None]
